FAERS Safety Report 21156003 (Version 1)
Quarter: 2022Q3

REPORT INFORMATION
  Report Type: Spontaneous
  Country: US (occurrence: None)
  Receive Date: 20220730
  Receipt Date: 20220730
  Transmission Date: 20221027
  Serious: Yes (Hospitalization)
  Sender: FDA-Public Use
  Company Number: None

PATIENT
  Sex: Male
  Weight: 91.53 kg

DRUGS (5)
  1. DEXAMETHASONE [Suspect]
     Active Substance: DEXAMETHASONE
  2. DARATUMUMAB\HYALURONIDASE-FIHJ [Concomitant]
     Active Substance: DARATUMUMAB\HYALURONIDASE-FIHJ
  3. LENALIDOMIDE [Concomitant]
     Active Substance: LENALIDOMIDE
  4. ASPIRIN [Concomitant]
  5. METOPROLOL [Concomitant]

REACTIONS (15)
  - Syncope [None]
  - Head injury [None]
  - Fall [None]
  - Loss of consciousness [None]
  - Oxygen saturation decreased [None]
  - Infection [None]
  - Extradural haematoma [None]
  - Subarachnoid haemorrhage [None]
  - Rib fracture [None]
  - Spinal compression fracture [None]
  - Skull fracture [None]
  - Staphylococcus test positive [None]
  - Cellulitis [None]
  - Arthritis bacterial [None]
  - Osteomyelitis [None]

NARRATIVE: CASE EVENT DATE: 20220512
